FAERS Safety Report 9519828 (Version 1)
Quarter: 2013Q3

REPORT INFORMATION
  Report Type: Report from Study
  Country: CA (occurrence: CA)
  Receive Date: 20130912
  Receipt Date: 20130912
  Transmission Date: 20140515
  Serious: Yes (Hospitalization)
  Sender: FDA-Public Use
  Company Number: CA-JNJFOC-20130903369

PATIENT
  Age: 27 Year
  Sex: Female
  Weight: 40 kg

DRUGS (2)
  1. REMICADE [Suspect]
     Indication: CROHN^S DISEASE
     Route: 042
     Dates: start: 201208, end: 201210
  2. REMICADE [Suspect]
     Indication: CROHN^S DISEASE
     Route: 042
     Dates: start: 201307

REACTIONS (5)
  - Ileostomy [Recovered/Resolved]
  - Abscess [Recovered/Resolved]
  - Rash pustular [Recovered/Resolved]
  - Colectomy [Recovered/Resolved]
  - Small intestinal resection [Recovered/Resolved]
